FAERS Safety Report 7581297-6 (Version None)
Quarter: 2011Q2

REPORT INFORMATION
  Report Type: 
  Country: None (occurrence: None)
  Receive Date: 20110629
  Receipt Date: 20110627
  Transmission Date: 20111010
  Serious: Yes (Disabling)
  Sender: FDA-Public Use
  Company Number: JP-PFIZER INC-2011117610

PATIENT
  Age: 83 Year
  Sex: Female
  Weight: 49 kg

DRUGS (2)
  1. ATARAX [Suspect]
     Dosage: 50 MG, SINGLE
     Route: 030
     Dates: start: 20110411, end: 20110411
  2. PENTAZOCINE LACTATE [Suspect]
     Dosage: 15 MG, 1X/DAY
     Route: 030
     Dates: start: 20110411, end: 20110411

REACTIONS (3)
  - ULNAR NERVE PALSY [None]
  - MUSCULAR WEAKNESS [None]
  - RADIAL NERVE PALSY [None]
